FAERS Safety Report 20398212 (Version 2)
Quarter: 2022Q1

REPORT INFORMATION
  Report Type: Spontaneous
  Country: US (occurrence: US)
  Receive Date: 20220131
  Receipt Date: 20220201
  Transmission Date: 20220423
  Serious: No
  Sender: FDA-Public Use
  Company Number: US-ABBVIE-21K-163-3846027-00

PATIENT
  Age: 54 Year
  Sex: Female

DRUGS (3)
  1. HUMIRA [Suspect]
     Active Substance: ADALIMUMAB
     Indication: Scleroderma
     Route: 058
     Dates: start: 202102
  2. COVID-19 VACCINE [Concomitant]
     Indication: COVID-19 immunisation
     Dosage: MANUFACTURER: PFIZER
     Route: 030
     Dates: start: 20210225, end: 20210225
  3. COVID-19 VACCINE [Concomitant]
     Dosage: MANUFACTURER: PFIZER
     Route: 030
     Dates: start: 20210318, end: 20210318

REACTIONS (3)
  - Off label use [Not Recovered/Not Resolved]
  - Wrong technique in product usage process [Unknown]
  - Device issue [Unknown]

NARRATIVE: CASE EVENT DATE: 20210201
